FAERS Safety Report 19183672 (Version 4)
Quarter: 2022Q2

REPORT INFORMATION
  Report Type: Spontaneous
  Country: US (occurrence: US)
  Receive Date: 20210427
  Receipt Date: 20220616
  Transmission Date: 20220721
  Serious: No
  Sender: FDA-Public Use
  Company Number: US-SA-SAC20210423001433

PATIENT
  Age: 17 Year
  Sex: Female

DRUGS (1)
  1. DUPIXENT [Suspect]
     Active Substance: DUPILUMAB
     Indication: Sinus polyp degeneration
     Dosage: 300 MG, QOW
     Route: 058
     Dates: start: 202003

REACTIONS (5)
  - Illness [Unknown]
  - Epistaxis [Unknown]
  - Rhinorrhoea [Unknown]
  - Musculoskeletal discomfort [Unknown]
  - Product use in unapproved indication [Unknown]
